FAERS Safety Report 8431091-9 (Version None)
Quarter: 2012Q2

REPORT INFORMATION
  Report Type: 
  Country: None (occurrence: None)
  Receive Date: 20120612
  Receipt Date: 20120531
  Transmission Date: 20120825
  Serious: Yes (Other)
  Sender: FDA-Public Use
  Company Number: FR-FRI-1000031159

PATIENT
  Sex: Male

DRUGS (17)
  1. CITALOPRAM HYDROBROMIDE [Suspect]
     Dosage: 20 MG
     Route: 048
     Dates: start: 20120330, end: 20120509
  2. IMOVANE [Concomitant]
     Route: 048
     Dates: start: 20120407
  3. RABEPRAZOLE SODIUM [Concomitant]
     Dates: end: 20120408
  4. ISOPTIN [Concomitant]
     Dosage: 120 MCG
     Route: 048
  5. VINCRISTINE [Concomitant]
     Indication: B-CELL LYMPHOMA
     Dosage: 4 COURSES DURING 4 MONTHS
     Dates: start: 20110901, end: 20120101
  6. CYCLOPHOSPHAMIDE [Concomitant]
     Indication: B-CELL LYMPHOMA
     Dosage: 4 COURSES DURING 4 MONTHS
     Dates: start: 20110901, end: 20120101
  7. ADRIAMYCIN PFS [Concomitant]
     Indication: B-CELL LYMPHOMA
     Dosage: 4 COURSES DURING 4 MONTHS
     Dates: start: 20110901, end: 20120101
  8. BACTRIM [Suspect]
     Dosage: 400/80
     Route: 048
     Dates: start: 20120214, end: 20120511
  9. HYDROCORTISONE [Concomitant]
     Dosage: 1.25 MCG
     Route: 048
     Dates: start: 20120330
  10. PANTOPRAZOLE [Concomitant]
     Dosage: 40 MCG
     Route: 048
     Dates: start: 20120408
  11. MABTHERA [Suspect]
     Indication: B-CELL LYMPHOMA
     Dosage: 4 COURSES DURING 4 MONTHS
     Route: 042
     Dates: start: 20110901, end: 20120101
  12. CITALOPRAM HYDROBROMIDE [Suspect]
     Dosage: 10 MG
     Route: 048
     Dates: start: 20120510, end: 20120511
  13. BISOPROLOL FUMARATE [Concomitant]
     Dosage: 1.25 MCG
     Route: 048
     Dates: start: 20120404
  14. XANAX [Concomitant]
  15. PREDNISOLONE [Concomitant]
     Dates: start: 20120214
  16. PENTOXIFYLLINE [Concomitant]
     Route: 048
  17. PREDNISONE [Concomitant]
     Indication: B-CELL LYMPHOMA
     Dosage: 4 COURSES DURING 4 MONTHS
     Dates: start: 20110901, end: 20120101

REACTIONS (2)
  - NEUTROPENIA [None]
  - LEUKOPENIA [None]
